FAERS Safety Report 10857363 (Version 1)
Quarter: 2015Q1

REPORT INFORMATION
  Report Type: Report from Study
  Country: PH (occurrence: PH)
  Receive Date: 20150223
  Receipt Date: 20150223
  Transmission Date: 20150721
  Serious: Yes (Hospitalization)
  Sender: FDA-Public Use
  Company Number: PHHY2015PH013608

PATIENT
  Sex: Male

DRUGS (1)
  1. EXJADE [Suspect]
     Active Substance: DEFERASIROX
     Indication: GLUCOSE-6-PHOSPHATE DEHYDROGENASE DEFICIENCY
     Dosage: 250 MG OR 500 MG
     Route: 048
     Dates: start: 20141104, end: 201412

REACTIONS (4)
  - Hepatic encephalopathy [Not Recovered/Not Resolved]
  - Product use issue [Unknown]
  - Serum ferritin increased [Not Recovered/Not Resolved]
  - Ocular icterus [Not Recovered/Not Resolved]
